FAERS Safety Report 8954745 (Version 1)
Quarter: 2012Q4

REPORT INFORMATION
  Report Type: Spontaneous
  Country: US (occurrence: None)
  Receive Date: 20121111
  Receipt Date: 20121111
  Transmission Date: 20130627
  Serious: Yes (Hospitalization, Other)
  Sender: FDA-Public Use
  Company Number: 2012P1065398

PATIENT
  Age: 57 Year
  Sex: Female

DRUGS (2)
  1. PHENYTOIN [Suspect]
     Indication: CONVULSION PROPHYLAXIS
  2. DEXAMETHASONE [Suspect]
     Indication: CONVULSION  PROPHYLAXIS

REACTIONS (9)
  - Convulsion [None]
  - Postictal state [None]
  - Mental status changes [None]
  - Unresponsive to stimuli [None]
  - Rash generalised [None]
  - Drug hypersensitivity [None]
  - Platelet count decreased [None]
  - Platelet morphology abnormal [None]
  - Drug interaction [None]
